FAERS Safety Report 17929416 (Version 1)
Quarter: 2020Q2

REPORT INFORMATION
  Report Type: Spontaneous
  Country: US (occurrence: US)
  Receive Date: 20200623
  Receipt Date: 20200623
  Transmission Date: 20200714
  Serious: No
  Sender: FDA-Public Use
  Company Number: US-ALLERGAN-1924210US

PATIENT
  Age: 58 Year
  Sex: Female

DRUGS (1)
  1. KYBELLA [Suspect]
     Active Substance: DEOXYCHOLIC ACID
     Indication: FAT TISSUE INCREASED
     Dosage: UNK, SINGLE
     Route: 058
     Dates: start: 20190521, end: 20190521

REACTIONS (4)
  - Injection site swelling [Recovering/Resolving]
  - Skin tightness [Not Recovered/Not Resolved]
  - Injection site hypoaesthesia [Recovering/Resolving]
  - Administration site induration [Recovering/Resolving]

NARRATIVE: CASE EVENT DATE: 201905
